FAERS Safety Report 8307710-4 (Version None)
Quarter: 2012Q2

REPORT INFORMATION
  Report Type: 
  Country: None (occurrence: None)
  Receive Date: 20120424
  Receipt Date: 20120422
  Transmission Date: 20120825
  Serious: Yes (Other)
  Sender: FDA-Public Use
  Company Number: US-PFIZER INC-2012061317

PATIENT
  Sex: Female

DRUGS (1)
  1. LYRICA [Suspect]
     Dosage: UNK

REACTIONS (5)
  - PAIN [None]
  - FIBROMYALGIA [None]
  - NEUROPATHY PERIPHERAL [None]
  - MIGRAINE [None]
  - ANXIETY [None]
